FAERS Safety Report 6682419-1 (Version None)
Quarter: 2010Q2

REPORT INFORMATION
  Report Type: 
  Country: None (occurrence: None)
  Receive Date: 20100415
  Receipt Date: 20100405
  Transmission Date: 20101027
  Serious: Yes (Other)
  Sender: FDA-Public Use
  Company Number: US-PFIZER INC-2010006506

PATIENT
  Sex: Female

DRUGS (1)
  1. SUTENT [Suspect]
     Indication: METASTATIC RENAL CELL CARCINOMA
     Dosage: 50 MG, 1X/DAY 4-2 CYCLE
     Route: 048
     Dates: start: 20091225

REACTIONS (3)
  - DYSPNOEA [None]
  - HYPERTENSION [None]
  - PERIORBITAL OEDEMA [None]
